FAERS Safety Report 17069204 (Version 1)
Quarter: 2019Q4

REPORT INFORMATION
  Report Type: Spontaneous
  Country: US (occurrence: US)
  Receive Date: 20191124
  Receipt Date: 20191124
  Transmission Date: 20200122
  Serious: No
  Sender: FDA-Public Use
  Company Number: US-009507513-1911USA004171

PATIENT
  Sex: Female

DRUGS (1)
  1. DULERA [Suspect]
     Active Substance: FORMOTEROL FUMARATE DIHYDRATE\MOMETASONE FUROATE
     Dosage: UNK, QD
     Route: 055
     Dates: start: 201911, end: 201911

REACTIONS (4)
  - Product dispensing error [Unknown]
  - Product dose omission [Unknown]
  - No adverse event [Unknown]
  - Expired product administered [Unknown]

NARRATIVE: CASE EVENT DATE: 201911
